FAERS Safety Report 18816612 (Version 1)
Quarter: 2021Q1

REPORT INFORMATION
  Report Type: Spontaneous
  Country: US (occurrence: US)
  Receive Date: 20210201
  Receipt Date: 20210201
  Transmission Date: 20210419
  Serious: No
  Sender: FDA-Public Use
  Company Number: US-GW PHARMA-202101USGW00293

PATIENT

DRUGS (2)
  1. EPIDIOLEX [Suspect]
     Active Substance: CANNABIDIOL
     Indication: LENNOX-GASTAUT SYNDROME
     Dosage: 350 MILLIGRAM, BID
     Route: 048
     Dates: start: 20200401, end: 202101
  2. EPIDIOLEX [Suspect]
     Active Substance: CANNABIDIOL
     Dosage: 400 MILLIGRAM, BID
     Route: 048
     Dates: start: 202101

REACTIONS (1)
  - Seizure [Unknown]
